FAERS Safety Report 5337250-6 (Version None)
Quarter: 2007Q2

REPORT INFORMATION
  Report Type: 
  Country: None (occurrence: None)
  Receive Date: 20070529
  Receipt Date: 20070522
  Transmission Date: 20071010
  Serious: Yes (Death, Hospitalization)
  Sender: FDA-Public Use
  Company Number: B0460274A

PATIENT
  Age: 94 Year
  Sex: Female
  Weight: 30 kg

DRUGS (5)
  1. VALTREX [Suspect]
     Indication: HERPES ZOSTER
     Dosage: 1000MG THREE TIMES PER DAY
     Route: 048
     Dates: start: 20060303, end: 20060305
  2. VIDARABINE [Concomitant]
     Indication: HERPES ZOSTER
     Dates: start: 20060303
  3. AMLODIN [Concomitant]
     Indication: HYPERTENSION
     Dosage: 5MG PER DAY
     Route: 048
     Dates: start: 20050509
  4. BLOPRESS [Concomitant]
     Indication: HYPERTENSION
     Dosage: 4MG PER DAY
     Route: 048
     Dates: start: 20050725
  5. CASAL [Concomitant]
     Indication: HERPES ZOSTER
     Dosage: 8G PER DAY
     Route: 061
     Dates: start: 20060303

REACTIONS (11)
  - ALTERED STATE OF CONSCIOUSNESS [None]
  - COMMUNICATION DISORDER [None]
  - DECREASED APPETITE [None]
  - DEHYDRATION [None]
  - EATING DISORDER [None]
  - HYPERKALAEMIA [None]
  - MALAISE [None]
  - OVERDOSE [None]
  - PNEUMONIA [None]
  - SOMNOLENCE [None]
  - SPEECH DISORDER [None]
